FAERS Safety Report 11740852 (Version 2)
Quarter: 2015Q4

REPORT INFORMATION
  Report Type: Other
  Country: IS (occurrence: IS)
  Receive Date: 20151115
  Receipt Date: 20151122
  Transmission Date: 20160304
  Serious: Yes (Hospitalization)
  Sender: FDA-Public Use
  Company Number: IS-DEXPHARM-20152189

PATIENT
  Age: 68 Year
  Sex: Male

DRUGS (3)
  1. DILCLOFENAC ENTERIC COATED TABLETS 100 MG [Suspect]
     Active Substance: DICLOFENAC
     Indication: ARTHRALGIA
     Route: 048
  2. SIMVASTATIN. [Concomitant]
     Active Substance: SIMVASTATIN
  3. THYROXINE-SODIUM [Concomitant]

REACTIONS (5)
  - Large intestinal stenosis [Unknown]
  - Constipation [Unknown]
  - Large intestinal ulcer [Unknown]
  - Faeces discoloured [Unknown]
  - Iron deficiency anaemia [Recovered/Resolved]
